FAERS Safety Report 11180840 (Version 1)
Quarter: 2015Q2

REPORT INFORMATION
  Report Type: Spontaneous
  Country: US (occurrence: None)
  Receive Date: 20150610
  Receipt Date: 20150610
  Transmission Date: 20150821
  Serious: Yes (Other)
  Sender: FDA-Public Use
  Company Number: None

PATIENT
  Age: 86 Year
  Sex: Male
  Weight: 82.1 kg

DRUGS (10)
  1. GARLIC. [Concomitant]
     Active Substance: GARLIC
  2. FINASTERIDE 5 MG [Suspect]
     Active Substance: FINASTERIDE
     Indication: PROSTATOMEGALY
     Dosage: 1 PILL
     Route: 048
     Dates: start: 20150418, end: 20150524
  3. VITAMIN D3 [Concomitant]
     Active Substance: CHOLECALCIFEROL
  4. PROSTACARE [Concomitant]
  5. ASPIRIN. [Concomitant]
     Active Substance: ASPIRIN
  6. GLUCOSOMINE [Concomitant]
  7. FINASTERIDE 5 MG [Suspect]
     Active Substance: FINASTERIDE
     Indication: PROSTATIC SPECIFIC ANTIGEN INCREASED
     Dosage: 1 PILL
     Route: 048
     Dates: start: 20150418, end: 20150524
  8. OMEGA 3-DHA-EPA [Concomitant]
  9. CATALYN (MULTVITAMIN) [Concomitant]
  10. FINASTERIDE 5 MG [Suspect]
     Active Substance: FINASTERIDE
     Indication: HAEMORRHAGE
     Dosage: 1 PILL
     Route: 048
     Dates: start: 20150418, end: 20150524

REACTIONS (1)
  - Hair growth abnormal [None]

NARRATIVE: CASE EVENT DATE: 20150418
